FAERS Safety Report 4620109-7 (Version None)
Quarter: 2005Q1

REPORT INFORMATION
  Report Type: 
  Country: None (occurrence: None)
  Receive Date: 20050322
  Receipt Date: 20050322
  Transmission Date: 20050727
  Serious: Yes (Life-Threatening, Hospitalization, Disabling)
  Sender: FDA-Public Use
  Company Number: None

PATIENT
  Age: 31 Year
  Sex: Female
  Weight: 117.028 kg

DRUGS (1)
  1. TEGRETOL [Suspect]
     Indication: CONVULSION
     Dosage: 500MG  2X12HRS  ORAL
     Route: 048
     Dates: start: 20040208, end: 20041108

REACTIONS (9)
  - ALOPECIA [None]
  - ASTHENIA [None]
  - BURNS FIRST DEGREE [None]
  - BURNS SECOND DEGREE [None]
  - BURNS THIRD DEGREE [None]
  - DECREASED APPETITE [None]
  - HEARING IMPAIRED [None]
  - STEVENS-JOHNSON SYNDROME [None]
  - VISUAL ACUITY REDUCED [None]
